FAERS Safety Report 24718335 (Version 7)
Quarter: 2025Q1

REPORT INFORMATION
  Report Type: Spontaneous
  Country: AR (occurrence: AR)
  Receive Date: 20241210
  Receipt Date: 20250314
  Transmission Date: 20250409
  Serious: No
  Sender: PFIZER
  Company Number: AR-PFIZER INC-PV202400128619

PATIENT
  Age: 74 Year
  Sex: Female

DRUGS (1)
  1. ENBREL [Suspect]
     Active Substance: ETANERCEPT

REACTIONS (3)
  - Device delivery system issue [Unknown]
  - Device occlusion [Unknown]
  - Drug dose omission by device [Unknown]
